FAERS Safety Report 20745415 (Version 1)
Quarter: 2022Q2

REPORT INFORMATION
  Report Type: Spontaneous
  Country: KR (occurrence: KR)
  Receive Date: 20220425
  Receipt Date: 20220425
  Transmission Date: 20220720
  Serious: Yes (Death, Other)
  Sender: FDA-Public Use
  Company Number: KR-SLATE RUN PHARMACEUTICALS-22KR001045

PATIENT

DRUGS (10)
  1. CILOSTAZOL [Suspect]
     Active Substance: CILOSTAZOL
     Indication: Anticoagulant therapy
     Dosage: UNK
     Route: 048
     Dates: start: 202101
  2. APIXABAN [Suspect]
     Active Substance: APIXABAN
     Indication: Anticoagulant therapy
     Dosage: UNK
     Route: 048
     Dates: start: 202101
  3. ALPROSTADIL [Suspect]
     Active Substance: ALPROSTADIL
     Indication: Vasodilatation
     Dosage: UNK
     Dates: start: 202101
  4. ATENOLOL [Concomitant]
     Active Substance: ATENOLOL
     Indication: Arrhythmia
  5. DEXAMETHASONE [Concomitant]
     Active Substance: DEXAMETHASONE
     Indication: Lung infiltration
     Dosage: 6 MILLIGRAM
     Dates: start: 202101
  6. DEXAMETHASONE [Concomitant]
     Active Substance: DEXAMETHASONE
     Indication: Lung opacity
  7. REMDESIVIR [Concomitant]
     Active Substance: REMDESIVIR
     Indication: Lung infiltration
     Dosage: UNK
  8. REMDESIVIR [Concomitant]
     Active Substance: REMDESIVIR
     Indication: Lung opacity
  9. OXYGEN [Concomitant]
     Active Substance: OXYGEN
     Indication: Lung infiltration
     Route: 045
  10. OXYGEN [Concomitant]
     Active Substance: OXYGEN
     Indication: Lung opacity

REACTIONS (5)
  - Acute respiratory distress syndrome [Fatal]
  - Iliac artery occlusion [Unknown]
  - Thrombosis [Unknown]
  - Peripheral vascular disorder [Unknown]
  - Treatment failure [Unknown]

NARRATIVE: CASE EVENT DATE: 20210101
